FAERS Safety Report 24968392 (Version 7)
Quarter: 2025Q4

REPORT INFORMATION
  Report Type: Report from Study
  Country: US (occurrence: US)
  Receive Date: 20250214
  Receipt Date: 20251125
  Transmission Date: 20260118
  Serious: Yes (Other)
  Sender: ABBVIE
  Company Number: US-ABBVIE-6127702

PATIENT
  Age: 35 Year
  Sex: Female
  Weight: 73 kg

DRUGS (14)
  1. UBRELVY [Suspect]
     Active Substance: UBROGEPANT
     Indication: Migraine without aura
     Dosage: TIME INTERVAL: AS NECESSARY
     Route: 048
     Dates: start: 20231015
  2. UBRELVY [Suspect]
     Active Substance: UBROGEPANT
     Indication: Migraine without aura
     Route: 048
  3. TYLENOL [Concomitant]
     Active Substance: ACETAMINOPHEN
     Indication: Headache
     Dosage: TIME INTERVAL: AS NECESSARY: TRIMESTER ONE/TYLENOL 8HR
     Route: 048
     Dates: start: 202401, end: 20241005
  4. ZYRTEC [Concomitant]
     Active Substance: CETIRIZINE HYDROCHLORIDE
     Indication: Multiple allergies
     Dosage: TIME INTERVAL: AS NECESSARY: TRIMESTER ONE
     Route: 048
     Dates: start: 2000
  5. ONDANSETRON [Concomitant]
     Active Substance: ONDANSETRON
     Indication: Migraine
     Dosage: TRIMESTER ONE
  6. COMPAZINE [Concomitant]
     Active Substance: PROCHLORPERAZINE MALEATE
     Indication: Migraine
     Dosage: TIME INTERVAL: AS NECESSARY
     Route: 065
     Dates: start: 2012, end: 2023
  7. FOLATE SODIUM [Concomitant]
     Active Substance: FOLATE SODIUM
     Indication: Nutritional supplementation
     Route: 048
     Dates: start: 2023
  8. ISOPTIN [Concomitant]
     Active Substance: VERAPAMIL HYDROCHLORIDE
     Indication: Migraine prophylaxis
     Dosage: TIME INTERVAL: 0.33333333 DAYS
     Route: 048
     Dates: start: 2023
  9. CELEXA [Concomitant]
     Active Substance: CITALOPRAM HYDROBROMIDE
     Indication: Anxiety
     Route: 048
     Dates: end: 2018
  10. VALIUM [Concomitant]
     Active Substance: DIAZEPAM
     Indication: Anxiety
     Dosage: TIME INTERVAL: AS NECESSARY
     Route: 048
     Dates: start: 2018
  11. ZOFRAN [Concomitant]
     Active Substance: ONDANSETRON HYDROCHLORIDE
     Indication: Nausea
     Dosage: TIME INTERVAL: AS NECESSARY: ODT- ORAL DISINTEGRATING TABLET
     Route: 048
     Dates: start: 2023
  12. KENALOG [Concomitant]
     Active Substance: TRIAMCINOLONE ACETONIDE
     Indication: Eczema
     Dosage: TIME INTERVAL: AS NECESSARY
     Route: 061
     Dates: start: 2015, end: 202405
  13. VITAMIN B COMPLEX [Concomitant]
     Active Substance: CYANOCOBALAMIN\DEXPANTHENOL\NIACINAMIDE\PYRIDOXINE HYDROCHLORIDE\RIBOFLAVIN 5^-PHOSPHATE SODIUM\THIA
     Indication: Migraine
     Dosage: VITAMINS, B COMPLEX; 1 TABLET ONCE A DAY
     Dates: start: 2018, end: 2023
  14. MAXALT [Concomitant]
     Active Substance: RIZATRIPTAN BENZOATE
     Indication: Migraine
     Dosage: PRIOR TO PREGNANCY
     Route: 048
     Dates: start: 20241201

REACTIONS (4)
  - Blood loss anaemia [Recovered/Resolved]
  - Hypertension [Recovered/Resolved]
  - Maternal exposure during pregnancy [Unknown]
  - Live birth [Unknown]

NARRATIVE: CASE EVENT DATE: 20241001
